FAERS Safety Report 13133768 (Version 1)
Quarter: 2017Q1

REPORT INFORMATION
  Report Type: Spontaneous
  Country: US (occurrence: US)
  Receive Date: 20170120
  Receipt Date: 20170120
  Transmission Date: 20170428
  Serious: No
  Sender: FDA-Public Use
  Company Number: US-OTSUKA-2016_027011

PATIENT
  Sex: Female

DRUGS (2)
  1. REXULTI [Suspect]
     Active Substance: BREXPIPRAZOLE
     Dosage: 3 MG, QD
     Route: 065
  2. REXULTI [Suspect]
     Active Substance: BREXPIPRAZOLE
     Indication: BIPOLAR I DISORDER
     Dosage: 2 MG, QD
     Route: 048
     Dates: start: 201608

REACTIONS (2)
  - Drug dose omission [Unknown]
  - Product use issue [Unknown]

NARRATIVE: CASE EVENT DATE: 201608
